FAERS Safety Report 8958894 (Version 1)
Quarter: 2012Q4

REPORT INFORMATION
  Report Type: 
  Country: ES (occurrence: ES)
  Receive Date: 20121212
  Receipt Date: 20121212
  Transmission Date: 20130627
  Serious: Yes (Life-Threatening, Other)
  Sender: FDA-Public Use
  Company Number: ES-ASTRAZENECA-2012SE92576

PATIENT
  Age: 23 Year
  Sex: Male

DRUGS (2)
  1. SEROQUEL PROLONG [Suspect]
     Route: 048
     Dates: start: 20120802, end: 20120802
  2. TRANXILIUM [Suspect]
     Route: 048
     Dates: start: 20120802, end: 20120802

REACTIONS (2)
  - Poisoning deliberate [Recovered/Resolved]
  - Somnolence [Recovered/Resolved]
